FAERS Safety Report 6035405-9 (Version None)
Quarter: 2009Q1

REPORT INFORMATION
  Report Type: 
  Country: None (occurrence: None)
  Receive Date: 20090112
  Receipt Date: 20090112
  Transmission Date: 20090719
  Serious: Yes (Life-Threatening)
  Sender: FDA-Public Use
  Company Number: None

PATIENT
  Age: 46 Year
  Sex: Female
  Weight: 68.0396 kg

DRUGS (1)
  1. LAMOTRIGINE [Suspect]
     Indication: MENTAL DISORDER
     Dosage: 2 TABS - THREE TIMES DAILY
     Dates: start: 20081022, end: 20081201

REACTIONS (7)
  - BLOOD PRESSURE INCREASED [None]
  - CRYING [None]
  - DEMENTIA [None]
  - HALLUCINATION, AUDITORY [None]
  - INFLUENZA LIKE ILLNESS [None]
  - SCHIZOPHRENIA [None]
  - SELF-INJURIOUS IDEATION [None]
